FAERS Safety Report 14995744 (Version 1)
Quarter: 2018Q2

REPORT INFORMATION
  Report Type: Spontaneous
  Country: US (occurrence: US)
  Receive Date: 20180518
  Receipt Date: 20180518
  Transmission Date: 20180711
  Serious: Yes (Other)
  Sender: FDA-Public Use
  Company Number: None

PATIENT
  Age: 53 Year
  Sex: Male
  Weight: 83.1 kg

DRUGS (1)
  1. PEMBROLIZUMAB 200MG [Suspect]
     Active Substance: PEMBROLIZUMAB
     Indication: NASOPHARYNGEAL CANCER
     Dosage: ?          OTHER FREQUENCY:EVERY 3 WEEKS;?
     Route: 042
     Dates: start: 20170519, end: 20180315

REACTIONS (7)
  - Pain [None]
  - Eosinophilia [None]
  - Rash maculo-papular [None]
  - Rash generalised [None]
  - Raynaud^s phenomenon [None]
  - Pallor [None]
  - Paraesthesia [None]

NARRATIVE: CASE EVENT DATE: 20180404
